FAERS Safety Report 4813123-X (Version None)
Quarter: 2005Q4

REPORT INFORMATION
  Report Type: 
  Country: None (occurrence: None)
  Receive Date: 20051028
  Receipt Date: 20051027
  Transmission Date: 20060501
  Serious: Yes (Death, Hospitalization, Other)
  Sender: FDA-Public Use
  Company Number: JP-SANOFI-SYNTHELABO-F01200502263

PATIENT
  Sex: Female
  Weight: 49 kg

DRUGS (8)
  1. OXALIPLATIN [Suspect]
     Indication: RECTAL CANCER
     Route: 042
     Dates: start: 20050712, end: 20050712
  2. OXALIPLATIN [Suspect]
     Dosage: 83.4 MG/BODY=60 MG/M2
     Route: 042
     Dates: start: 20050809, end: 20050809
  3. FLUOROURACIL [Suspect]
     Indication: RECTAL CANCER
     Dosage: 400 MG/M2 IV BOLUS AND 600 MG/M2 IV 22 HOURS CONTINUOUS INFUSION, Q2W
     Route: 042
     Dates: start: 20050712, end: 20050713
  4. FLUOROURACIL [Suspect]
     Dosage: 97.3 MG/BODY=70 MG/M2
     Route: 042
     Dates: start: 20050809, end: 20050810
  5. CALCIUM LEVOFOLINATE [Suspect]
     Indication: RECTAL CANCER
     Route: 042
     Dates: start: 20050712, end: 20050713
  6. CALCIUM LEVOFOLINATE [Suspect]
     Dosage: 389.2 MG/BODY=280 MG/M2 IN BOLUS THEN 583.8 MG/BODY=420 MG/M2 AS CONTINOUS INFUSION
     Route: 042
     Dates: start: 20050712, end: 20050713
  7. SULBACTAM [Concomitant]
     Dates: start: 20050715, end: 20050717
  8. PANSPORIN [Concomitant]
     Dates: start: 20050818, end: 20050818

REACTIONS (3)
  - HEPATIC FUNCTION ABNORMAL [None]
  - NAUSEA [None]
  - VOMITING [None]
